FAERS Safety Report 5655000-0 (Version None)
Quarter: 2008Q1

REPORT INFORMATION
  Report Type: 
  Country: None (occurrence: None)
  Receive Date: 20080307
  Receipt Date: 20071012
  Transmission Date: 20080703
  Serious: No
  Sender: FDA-Public Use
  Company Number: A0688098A

PATIENT

DRUGS (2)
  1. REQUIP [Suspect]
     Indication: DRUG USE FOR UNKNOWN INDICATION
  2. ANTIDEPRESSANT [Concomitant]

REACTIONS (2)
  - OEDEMA PERIPHERAL [None]
  - PALPITATIONS [None]
